FAERS Safety Report 26194753 (Version 1)
Quarter: 2025Q4

REPORT INFORMATION
  Report Type: Spontaneous
  Country: CN (occurrence: CN)
  Receive Date: 20251224
  Receipt Date: 20251224
  Transmission Date: 20260119
  Serious: Yes (Hospitalization)
  Sender: FRESENIUS KABI
  Company Number: CN-FreseniusKabi-FK202517545

PATIENT
  Age: 76 Year
  Sex: Female
  Weight: 63 kg

DRUGS (4)
  1. PROPOFOL [Suspect]
     Active Substance: PROPOFOL
     Indication: Gastrooesophageal reflux disease
     Dosage: FOA: INJECTION?ROA: INTRAVENOUS INJECTION
     Dates: start: 20251203, end: 20251203
  2. PROPOFOL [Suspect]
     Active Substance: PROPOFOL
     Indication: Endoscopy gastrointestinal
  3. ETOMIDATE [Suspect]
     Active Substance: ETOMIDATE
     Indication: Gastrooesophageal reflux disease
     Dosage: FOA: INJECTION?ROA: INTRAVENOUS INJECTION
     Dates: start: 20251203, end: 20251203
  4. ETOMIDATE [Suspect]
     Active Substance: ETOMIDATE
     Indication: Endoscopy gastrointestinal

REACTIONS (1)
  - Seizure [Recovered/Resolved]

NARRATIVE: CASE EVENT DATE: 20251203
